FAERS Safety Report 21456847 (Version 2)
Quarter: 2022Q4

REPORT INFORMATION
  Report Type: Report from Study
  Country: FR (occurrence: None)
  Receive Date: 20221014
  Receipt Date: 20221110
  Transmission Date: 20230113
  Serious: Yes (Hospitalization)
  Sender: FDA-Public Use
  Company Number: FR-Merck Healthcare KGaA-9357752

PATIENT
  Age: 4 Year
  Sex: Male

DRUGS (4)
  1. SAIZEN [Suspect]
     Active Substance: SOMATROPIN
     Indication: Growth retardation
     Route: 058
     Dates: start: 20220904
  2. SAIZEN [Suspect]
     Active Substance: SOMATROPIN
     Indication: Small for dates baby
  3. SAIZEN [Suspect]
     Active Substance: SOMATROPIN
     Indication: Weight abnormal
  4. SAIZEN [Suspect]
     Active Substance: SOMATROPIN
     Indication: Oral disorder

REACTIONS (3)
  - Speech disorder [Unknown]
  - Herpangina [Unknown]
  - Off label use [Unknown]
